FAERS Safety Report 22841672 (Version 3)
Quarter: 2023Q4

REPORT INFORMATION
  Report Type: Report from Study
  Country: GB (occurrence: GB)
  Receive Date: 20230821
  Receipt Date: 20231106
  Transmission Date: 20240110
  Serious: Yes (Hospitalization, Other)
  Sender: FDA-Public Use
  Company Number: GB-SANDOZ-SDZ2023GB015176

PATIENT
  Sex: Male

DRUGS (1)
  1. ERELZI [Suspect]
     Active Substance: ETANERCEPT-SZZS
     Indication: Rheumatoid arthritis
     Dosage: 50 MG, QW (EW)
     Route: 058
     Dates: start: 20230815

REACTIONS (4)
  - Pneumonia [Unknown]
  - Injection site pain [Unknown]
  - Incorrect dose administered [Unknown]
  - Product dose omission issue [Unknown]
